FAERS Safety Report 9456589 (Version 1)
Quarter: 2013Q3

REPORT INFORMATION
  Report Type: Spontaneous
  Country: US (occurrence: US)
  Receive Date: 20130813
  Receipt Date: 20130813
  Transmission Date: 20140515
  Serious: Yes (Other)
  Sender: FDA-Public Use
  Company Number: US-US-EMD SERONO, INC.-7096909

PATIENT
  Sex: Female

DRUGS (1)
  1. REBIF [Suspect]
     Indication: MULTIPLE SCLEROSIS
     Route: 058
     Dates: start: 20100706

REACTIONS (3)
  - Autoimmune thyroiditis [Not Recovered/Not Resolved]
  - Injection site discomfort [Unknown]
  - Injection site reaction [Not Recovered/Not Resolved]
